FAERS Safety Report 8219641-9 (Version None)
Quarter: 2012Q1

REPORT INFORMATION
  Report Type: 
  Country: None (occurrence: None)
  Receive Date: 20120319
  Receipt Date: 20120314
  Transmission Date: 20120608
  Serious: No
  Sender: FDA-Public Use
  Company Number: US-BAYER-2012-025420

PATIENT
  Age: 28 Year
  Sex: Female
  Weight: 52 kg

DRUGS (4)
  1. ALEVE (CAPLET) [Suspect]
     Dosage: DAILY DOSE 7 DF
     Route: 048
     Dates: start: 20120314
  2. HYDROCODONE [Concomitant]
  3. ALEVE (CAPLET) [Suspect]
     Indication: TOOTHACHE
     Dosage: DAILY DOSE 3 DF
     Route: 048
     Dates: start: 20120313
  4. AMOXICILLIN [Concomitant]

REACTIONS (1)
  - TOOTHACHE [None]
